FAERS Safety Report 5573988-3 (Version None)
Quarter: 2007Q4

REPORT INFORMATION
  Report Type: 
  Country: None (occurrence: None)
  Receive Date: 20071218
  Receipt Date: 20071212
  Transmission Date: 20080405
  Serious: Yes (Hospitalization)
  Sender: FDA-Public Use
  Company Number: 200712527

PATIENT
  Age: 9 Year
  Sex: Male

DRUGS (1)
  1. VIVAGLOBIN [Suspect]

REACTIONS (1)
  - MENINGITIS ASEPTIC [None]
